FAERS Safety Report 12622943 (Version 1)
Quarter: 2016Q3

REPORT INFORMATION
  Report Type: Spontaneous
  Country: US (occurrence: US)
  Receive Date: 20160804
  Receipt Date: 20160804
  Transmission Date: 20161109
  Serious: Yes (Hospitalization)
  Sender: FDA-Public Use
  Company Number: US-PFIZER INC-2016234555

PATIENT
  Age: 15 Year
  Sex: Female
  Weight: 45.36 kg

DRUGS (4)
  1. CHAPSTICK CLASSIC ORIGINAL [Suspect]
     Active Substance: PETROLATUM
     Indication: CHAPPED LIPS
     Dosage: UNK UNK, 3X/DAY
     Dates: start: 201604, end: 20160425
  2. CAMPHOR [Suspect]
     Active Substance: CAMPHOR
     Indication: LIP DRY
  3. CAMPHOR [Suspect]
     Active Substance: CAMPHOR
     Indication: CHAPPED LIPS
     Dosage: UNK UNK, 3X/DAY
     Dates: end: 20160425
  4. CHAPSTICK CLASSIC ORIGINAL [Suspect]
     Active Substance: PETROLATUM
     Indication: LIP DRY

REACTIONS (3)
  - Reaction to drug excipients [Recovered/Resolved]
  - Lip swelling [Recovered/Resolved]
  - Cheilitis [Recovered/Resolved]

NARRATIVE: CASE EVENT DATE: 201604
